FAERS Safety Report 19074687 (Version 2)
Quarter: 2021Q3

REPORT INFORMATION
  Report Type: Spontaneous
  Country: GR (occurrence: GR)
  Receive Date: 20210330
  Receipt Date: 20210712
  Transmission Date: 20211014
  Serious: Yes (Other)
  Sender: FDA-Public Use
  Company Number: GR-DSJP-DSE-2021-109601

PATIENT
  Age: 80 Year
  Sex: Male

DRUGS (4)
  1. OLMESARTAN MEDOXOMIL_AMLODIPINE_HYDROCHLOROTHIAZIDE [Suspect]
     Active Substance: AMLODIPINE\HYDROCHLOROTHIAZIDE\OLMESARTAN
     Indication: HYPERTENSION
     Dosage: UNK
  2. SIMVASTATIN. [Interacting]
     Active Substance: SIMVASTATIN
     Indication: DYSLIPIDAEMIA
     Dosage: UNK
  3. CLARITHROMYCIN. [Interacting]
     Active Substance: CLARITHROMYCIN
     Indication: PYREXIA
     Dosage: UNK
  4. METFORMIN HYDROCHLORIDE W/VILDAGLIPTIN [Interacting]
     Active Substance: METFORMIN HYDROCHLORIDE\VILDAGLIPTIN
     Indication: DIABETES MELLITUS
     Dosage: UNK

REACTIONS (8)
  - Hyperkalaemia [Unknown]
  - Hepatic function abnormal [Recovered/Resolved]
  - Malaise [Unknown]
  - Rhabdomyolysis [Unknown]
  - Renal impairment [Recovered/Resolved]
  - Fatigue [Unknown]
  - Drug interaction [Recovered/Resolved]
  - Pyrexia [Recovered/Resolved]
